FAERS Safety Report 18705203 (Version 2)
Quarter: 2021Q1

REPORT INFORMATION
  Report Type: Spontaneous
  Country: US (occurrence: US)
  Receive Date: 20210106
  Receipt Date: 20210203
  Transmission Date: 20210419
  Serious: No
  Sender: FDA-Public Use
  Company Number: US-ASTRAZENECA-2020SF65127

PATIENT
  Sex: Female
  Weight: 52.6 kg

DRUGS (2)
  1. SYMBICORT [Suspect]
     Active Substance: BUDESONIDE\FORMOTEROL FUMARATE DIHYDRATE
     Indication: ASTHMA
     Dosage: 160/4.5 MCG 120 INHALATIONS 2 PUFFS TWICE DAILY
     Route: 055
     Dates: start: 20201201
  2. SYMBICORT [Suspect]
     Active Substance: BUDESONIDE\FORMOTEROL FUMARATE DIHYDRATE
     Indication: CHRONIC OBSTRUCTIVE PULMONARY DISEASE
     Dosage: 160/4.5 MCG 120 INHALATIONS 2 PUFFS TWICE DAILY
     Route: 055
     Dates: start: 20201201

REACTIONS (8)
  - Feeling cold [Unknown]
  - Rhinorrhoea [Unknown]
  - Cough [Unknown]
  - Product dose omission issue [Unknown]
  - Wrong technique in device usage process [Unknown]
  - Intentional device misuse [Unknown]
  - Incorrect dose administered [Unknown]
  - Device malfunction [Unknown]
